FAERS Safety Report 16443972 (Version 2)
Quarter: 2019Q3

REPORT INFORMATION
  Report Type: Other
  Country: TN (occurrence: TN)
  Receive Date: 20190618
  Receipt Date: 20190709
  Transmission Date: 20191004
  Serious: Yes (Hospitalization)
  Sender: FDA-Public Use
  Company Number: TN-FDC LIMITED-2069294

PATIENT
  Age: 16 Year
  Sex: Female

DRUGS (3)
  1. MEFENAMIC ACID. [Suspect]
     Active Substance: MEFENAMIC ACID
     Route: 054
  2. NIFLUMIC ACID [Suspect]
     Active Substance: NIFLUMIC ACID
     Route: 065
  3. CIPROFLOXACIN. [Suspect]
     Active Substance: CIPROFLOXACIN
     Indication: URINARY TRACT INFECTION
     Route: 048

REACTIONS (1)
  - Crystal nephropathy [Recovering/Resolving]
